FAERS Safety Report 6636191-1 (Version None)
Quarter: 2010Q1

REPORT INFORMATION
  Report Type: 
  Country: None (occurrence: None)
  Receive Date: 20100316
  Receipt Date: 20100303
  Transmission Date: 20100710
  Serious: Yes (Hospitalization, Disabling)
  Sender: FDA-Public Use
  Company Number: US-ELI_LILLY_AND_COMPANY-US200911005920

PATIENT
  Sex: Male
  Weight: 97.052 kg

DRUGS (1)
  1. ZYPREXA [Suspect]
     Dosage: 20 MG, DAILY (1/D)
     Dates: start: 20031101, end: 20050901

REACTIONS (16)
  - DIABETES MELLITUS [None]
  - DIARRHOEA [None]
  - DRY SKIN [None]
  - HEADACHE [None]
  - HYPOAESTHESIA [None]
  - INSOMNIA [None]
  - METABOLIC DISORDER [None]
  - MYOCARDIAL INFARCTION [None]
  - NAUSEA [None]
  - OBESITY [None]
  - PAIN [None]
  - POOR PERIPHERAL CIRCULATION [None]
  - SKIN CHAPPED [None]
  - SKIN LESION [None]
  - SWELLING [None]
  - WEIGHT INCREASED [None]
